FAERS Safety Report 8898489 (Version 1)
Quarter: 2012Q4

REPORT INFORMATION
  Report Type: 
  Country: FR (occurrence: FR)
  Receive Date: 20121109
  Receipt Date: 20121109
  Transmission Date: 20130627
  Serious: Yes (Hospitalization, Other)
  Sender: FDA-Public Use
  Company Number: FR-AMGEN-FRASP2012070916

PATIENT
  Age: 60 Year
  Sex: Male

DRUGS (1)
  1. ARANESP [Suspect]
     Indication: PRODUCT USED FOR UNKNOWN INDICATION
     Dosage: 80 mg, q2wk
     Dates: start: 20120715

REACTIONS (4)
  - Encephalopathy [Recovered/Resolved]
  - Ascites [Unknown]
  - Abdominal pain [Unknown]
  - Visual acuity reduced [Unknown]
